FAERS Safety Report 8541240-X (Version None)
Quarter: 2012Q3

REPORT INFORMATION
  Report Type: 
  Country: None (occurrence: None)
  Receive Date: 20120726
  Receipt Date: 20120718
  Transmission Date: 20120928
  Serious: Yes (Other)
  Sender: FDA-Public Use
  Company Number: AT-JNJFOC-20120606723

PATIENT
  Age: 54 Year
  Sex: Female

DRUGS (7)
  1. DAFLON [Concomitant]
     Route: 048
  2. CAL-D-VITA [Concomitant]
     Route: 048
  3. RABEPRAZOLE SODIUM [Concomitant]
     Route: 048
  4. ALL OTHER THERAPEUTICS [Concomitant]
     Route: 030
  5. SYMBICORT [Concomitant]
     Route: 065
  6. REMICADE [Suspect]
     Indication: CROHN'S DISEASE
     Route: 042
     Dates: end: 20110927
  7. DIBONDRIN [Concomitant]
     Route: 065

REACTIONS (5)
  - PARAESTHESIA [None]
  - HEADACHE [None]
  - MULTIPLE SCLEROSIS [None]
  - SPINAL COLUMN STENOSIS [None]
  - VOMITING [None]
